FAERS Safety Report 16373888 (Version 1)
Quarter: 2019Q2

REPORT INFORMATION
  Report Type: Spontaneous
  Country: US (occurrence: US)
  Receive Date: 20190530
  Receipt Date: 20190530
  Transmission Date: 20190711
  Serious: Yes (Other)
  Sender: FDA-Public Use
  Company Number: US-TEVA-2019-US-1055756

PATIENT
  Age: 65 Year
  Sex: Male

DRUGS (5)
  1. 5-FLUOROURACIL [Suspect]
     Active Substance: FLUOROURACIL
     Indication: PANCREATIC CARCINOMA METASTATIC
     Dosage: PLANNED FOR 15 MIN
     Route: 050
  2. 5-FLUOROURACIL [Suspect]
     Active Substance: FLUOROURACIL
     Indication: PANCREATIC CARCINOMA METASTATIC
     Dosage: CONTINUOUS; PLANNED FOR 46 HOURS
     Route: 050
  3. OXALIPLATIN. [Suspect]
     Active Substance: OXALIPLATIN
     Indication: PANCREATIC CARCINOMA METASTATIC
     Dosage: THERAPY ADMINISTERED FOR 2 HOURS BEFORE IRINOTECAN
     Route: 065
  4. IRINOTECAN [Interacting]
     Active Substance: IRINOTECAN
     Indication: PANCREATIC CARCINOMA METASTATIC
     Route: 041
  5. IRINOTECAN [Interacting]
     Active Substance: IRINOTECAN
     Indication: PANCREATIC CARCINOMA METASTATIC
     Dosage: OCCURRENCE AT 3RD INFUSION
     Route: 041

REACTIONS (10)
  - Diarrhoea [Unknown]
  - Drug interaction [Unknown]
  - Muscle spasms [Unknown]
  - Abdominal distension [Unknown]
  - Asthenia [Unknown]
  - Paraesthesia oral [Unknown]
  - Nausea [Unknown]
  - Temperature intolerance [Unknown]
  - Dysarthria [Unknown]
  - Fatigue [Unknown]
